FAERS Safety Report 12419714 (Version 1)
Quarter: 2016Q2

REPORT INFORMATION
  Report Type: Spontaneous
  Country: None (occurrence: None)
  Receive Date: 20160527
  Receipt Date: 20160527
  Transmission Date: 20160815
  Serious: No
  Sender: FDA-Public Use
  Company Number: None

PATIENT
  Sex: Female

DRUGS (3)
  1. ASPIRIN. [Suspect]
     Active Substance: ASPIRIN
  2. TOUJEO [Suspect]
     Active Substance: INSULIN GLARGINE
  3. TYLENOL [Suspect]
     Active Substance: ACETAMINOPHEN

REACTIONS (5)
  - Ulcer haemorrhage [None]
  - Fungal infection [None]
  - Blood glucose increased [None]
  - Cough [None]
  - Pneumonia [None]
